FAERS Safety Report 11827027 (Version 1)
Quarter: 2015Q4

REPORT INFORMATION
  Report Type: Report from Study
  Country: US (occurrence: US)
  Receive Date: 20151211
  Receipt Date: 20151211
  Transmission Date: 20160305
  Serious: Yes (Hospitalization)
  Sender: FDA-Public Use
  Company Number: US-BAYER-2015-437948

PATIENT
  Age: 68 Year
  Sex: Male

DRUGS (2)
  1. STIVARGA [Suspect]
     Active Substance: REGORAFENIB
     Indication: COLON CANCER
     Dosage: 80 MG, QD (40 MG TAB 21 ON AND 7 OFF)
     Route: 048
     Dates: start: 201509
  2. STIVARGA [Suspect]
     Active Substance: REGORAFENIB
     Indication: COLON CANCER
     Dosage: 80 MG (21 ON 7 OFF)
     Route: 048
     Dates: start: 20130604

REACTIONS (10)
  - Burning sensation [None]
  - Immunodeficiency [None]
  - Middle insomnia [None]
  - Night sweats [None]
  - Necrotising fasciitis [None]
  - Decreased appetite [None]
  - Muscle spasms [None]
  - Dyspnoea [None]
  - Headache [None]
  - Feeling cold [None]
